FAERS Safety Report 6868966-8 (Version None)
Quarter: 2010Q3

REPORT INFORMATION
  Report Type: 
  Country: None (occurrence: None)
  Receive Date: 20100722
  Receipt Date: 20100722
  Transmission Date: 20110219
  Serious: Yes (Death)
  Sender: FDA-Public Use
  Company Number: None

PATIENT
  Sex: Female
  Weight: 47.5 kg

DRUGS (1)
  1. DASATINIB [Suspect]
     Indication: NON-SMALL CELL LUNG CANCER
     Dosage: DASATINIB 70MG BID PO
     Route: 048
     Dates: start: 20100512, end: 20100608

REACTIONS (2)
  - DYSPNOEA [None]
  - UNEVALUABLE EVENT [None]
